FAERS Safety Report 10103390 (Version 1)
Quarter: 2014Q2

REPORT INFORMATION
  Report Type: Spontaneous
  Country: US (occurrence: US)
  Receive Date: 20140424
  Receipt Date: 20140424
  Transmission Date: 20141212
  Serious: No
  Sender: FDA-Public Use
  Company Number: US-BRISTOL-MYERS SQUIBB COMPANY-20385969

PATIENT
  Age: 84 Year
  Sex: Female
  Weight: 58.96 kg

DRUGS (2)
  1. ELIQUIS [Suspect]
     Dosage: DOSE REDUCED TO 2.5MG
     Dates: start: 201402
  2. LEVOTHYROXINE [Concomitant]

REACTIONS (3)
  - Blood pressure increased [Recovered/Resolved]
  - Fatigue [Unknown]
  - Malaise [Unknown]
